FAERS Safety Report 7078174-6 (Version None)
Quarter: 2010Q4

REPORT INFORMATION
  Report Type: 
  Country: None (occurrence: None)
  Receive Date: 20101101
  Receipt Date: 20101101
  Transmission Date: 20110411
  Serious: Yes (Other)
  Sender: FDA-Public Use
  Company Number: None

PATIENT
  Age: 66 Year
  Sex: Male
  Weight: 71.8 kg

DRUGS (1)
  1. HYDROXYZINE HCL [Suspect]
     Indication: HYPERSENSITIVITY
     Dosage: 10 MG 1 BID ORAL (1 DOSE ONLY)
     Route: 048
     Dates: start: 20100710

REACTIONS (3)
  - BALANCE DISORDER [None]
  - DIZZINESS [None]
  - NAUSEA [None]
